FAERS Safety Report 7951284 (Version 4)
Quarter: 2021Q3

REPORT INFORMATION
  Report Type: Report from Study
  Country: NL (occurrence: NL)
  Receive Date: 20110519
  Receipt Date: 20210901
  Transmission Date: 20211014
  Serious: Yes (Death, Life-Threatening, Other)
  Sender: FDA-Public Use
  Company Number: NL-GENZYME-200821167GPV

PATIENT
  Age: 59 Year
  Sex: Male

DRUGS (20)
  1. ALEMTUZUMAB [Suspect]
     Active Substance: ALEMTUZUMAB
     Dosage: 30 MG, 3 DOSES OF 30 MG AT DAYS 1, 5 AND 10 PER INJECTION
     Route: 058
     Dates: start: 2006, end: 2006
  2. METHYLPREDNISOLONE. [Suspect]
     Active Substance: METHYLPREDNISOLONE
     Indication: ANGIOIMMUNOBLASTIC T-CELL LYMPHOMA STAGE III
     Dosage: 100 MG, QD (DAY 1?5 IN 14 DAY CYCLE)
     Route: 048
     Dates: start: 2006, end: 200604
  3. PREDNISONE. [Suspect]
     Active Substance: PREDNISONE
     Indication: ANGIOIMMUNOBLASTIC T-CELL LYMPHOMA STAGE III
     Dosage: 100 MG, QD (DAY 1?5 IN 14 DAY CYCLE)
     Route: 048
     Dates: start: 2006, end: 200604
  4. ALLOPURINOL. [Concomitant]
     Active Substance: ALLOPURINOL
     Indication: PROPHYLAXIS
     Dosage: 300 MG,UNK
     Dates: start: 2006
  5. ALEMTUZUMAB [Suspect]
     Active Substance: ALEMTUZUMAB
     Dosage: 10 MG,1X, INJECTION DAY 5 OF CHOP CYCLE
     Route: 058
     Dates: start: 2006, end: 2006
  6. ALEMTUZUMAB [Suspect]
     Active Substance: ALEMTUZUMAB
     Dosage: 30 MG; 3 DOSES OF 30 MG AT DAYS 1, 5 AND 10 PER INJECTION
     Route: 058
     Dates: start: 2006, end: 200604
  7. VALACICLOVIR [Concomitant]
     Active Substance: VALACYCLOVIR HYDROCHLORIDE
     Indication: ANTIVIRAL PROPHYLAXIS
     Dosage: 500 MG,BID
     Dates: start: 2006, end: 2006
  8. ALEMTUZUMAB [Suspect]
     Active Substance: ALEMTUZUMAB
     Dosage: 30 MG, 3 DOSES OF 30 MG AT DAYS 1, 5 AND 10 PER INJECTION
     Route: 058
     Dates: start: 2006, end: 2006
  9. DOXORUBICIN [Suspect]
     Active Substance: DOXORUBICIN
     Indication: ANGIOIMMUNOBLASTIC T-CELL LYMPHOMA STAGE III
     Dosage: 50 MG/M2, QOW
     Route: 042
     Dates: start: 2006, end: 200604
  10. ALEMTUZUMAB [Suspect]
     Active Substance: ALEMTUZUMAB
     Indication: ANGIOIMMUNOBLASTIC T-CELL LYMPHOMA STAGE II
     Dosage: 3 MG,1X, INJECTION DAY 1 OF CHOP CYCLE
     Route: 058
     Dates: start: 2006, end: 2006
  11. ALEMTUZUMAB [Suspect]
     Active Substance: ALEMTUZUMAB
     Dosage: 30 MG; 3 DOSES OF 30 MG AT DAYS 1, 5 AND 10 PER INJECTION
     Route: 058
     Dates: start: 2006, end: 2006
  12. FLUCONAZOLE. [Concomitant]
     Active Substance: FLUCONAZOLE
     Indication: ANTIFUNGAL PROPHYLAXIS
     Dosage: UNK UNK,QD (100?150 MG)
     Dates: start: 2006, end: 2006
  13. ALEMTUZUMAB [Suspect]
     Active Substance: ALEMTUZUMAB
     Dosage: 30 MG, 3 DOSES OF 30 MG AT DAYS 1, 5 AND 10 PER INJECTION
     Route: 058
     Dates: start: 2006, end: 2006
  14. VINCRISTINE SULFATE. [Suspect]
     Active Substance: VINCRISTINE SULFATE
     Indication: ANGIOIMMUNOBLASTIC T-CELL LYMPHOMA STAGE III
     Dosage: 14 MG/M2, QOW (MAXIMUM OF 2 MG)
     Route: 042
     Dates: start: 2006, end: 200604
  15. COTRIMOXAZOL [Concomitant]
     Active Substance: SULFAMETHOXAZOLE\TRIMETHOPRIM
     Indication: INFECTION PROPHYLAXIS
     Dosage: 480 MG,TWICE A DAY, THREE TIMES A WEEK
     Dates: start: 2006, end: 2006
  16. COTRIMOXAZOL [Concomitant]
     Active Substance: SULFAMETHOXAZOLE\TRIMETHOPRIM
     Dosage: 960 MG, BID
     Dates: start: 2006, end: 2006
  17. ALEMTUZUMAB [Suspect]
     Active Substance: ALEMTUZUMAB
     Dosage: 30 MG,1X,  INJECTION DAY 10 OF CHOP CYCLE
     Route: 058
     Dates: start: 2006, end: 2006
  18. PEGFILGRASTIM [Concomitant]
     Active Substance: PEGFILGRASTIM
     Indication: PRODUCT USED FOR UNKNOWN INDICATION
     Dosage: 6 MG,1X, AT DAY 2, BEFORE BEDTIME
     Route: 058
     Dates: start: 2006, end: 200604
  19. CYCLOPHOSPHAMIDE. [Suspect]
     Active Substance: CYCLOPHOSPHAMIDE
     Indication: ANGIOIMMUNOBLASTIC T-CELL LYMPHOMA STAGE III
     Dosage: 750 MG, QOW
     Route: 042
     Dates: start: 2006, end: 200604
  20. PARACETAMOL [Concomitant]
     Active Substance: ACETAMINOPHEN
     Indication: PREMEDICATION
     Dosage: 1000 MG,UNK
     Dates: start: 2006, end: 2006

REACTIONS (11)
  - Dyspnoea [Fatal]
  - Pyrexia [Fatal]
  - Skin mass [Fatal]
  - Cytomegalovirus infection reactivation [Recovered/Resolved]
  - Splenomegaly [Fatal]
  - Pleural effusion [Fatal]
  - Epstein-Barr virus associated lymphoproliferative disorder [Fatal]
  - Angioimmunoblastic T-cell lymphoma recurrent [Fatal]
  - Lymphadenopathy [Fatal]
  - Ascites [Fatal]
  - Cytomegalovirus chorioretinitis [Unknown]

NARRATIVE: CASE EVENT DATE: 20060403
